FAERS Safety Report 8846438 (Version 2)
Quarter: 2013Q2

REPORT INFORMATION
  Report Type: Spontaneous
  Country: US (occurrence: US)
  Receive Date: 20121017
  Receipt Date: 20130509
  Transmission Date: 20140414
  Serious: Yes (Other)
  Sender: FDA-Public Use
  Company Number: US-ROCHE-1146155

PATIENT
  Age: 24 Year
  Sex: Male
  Weight: 86.26 kg

DRUGS (1)
  1. ACCUTANE [Suspect]
     Indication: ACNE
     Route: 065
     Dates: start: 199606, end: 199609

REACTIONS (7)
  - Injury [Unknown]
  - Inflammatory bowel disease [Unknown]
  - Crohn^s disease [Unknown]
  - Depression [Unknown]
  - Suicidal ideation [Unknown]
  - Colitis ulcerative [Unknown]
  - Anal fistula [Unknown]
